FAERS Safety Report 19911851 (Version 1)
Quarter: 2021Q4

REPORT INFORMATION
  Report Type: Spontaneous
  Country: RO (occurrence: RO)
  Receive Date: 20211004
  Receipt Date: 20211004
  Transmission Date: 20220303
  Serious: Yes (Other)
  Sender: FDA-Public Use
  Company Number: RO-PFIZER INC-2015323513

PATIENT
  Age: 35 Year
  Sex: Female

DRUGS (1)
  1. ETHINYL ESTRADIOL\LEVONORGESTREL [Suspect]
     Active Substance: ETHINYL ESTRADIOL\LEVONORGESTREL
     Indication: Contraception
     Dosage: LEVONORGESTREL 0.150 MG/ ETHINYLESTRADIOL 0.030 MG
     Route: 048

REACTIONS (1)
  - Retinal vein occlusion [Recovered/Resolved]
